FAERS Safety Report 6151176-X (Version None)
Quarter: 2009Q2

REPORT INFORMATION
  Report Type: 
  Country: None (occurrence: None)
  Receive Date: 20090410
  Receipt Date: 20090402
  Transmission Date: 20091009
  Serious: Yes (Hospitalization)
  Sender: FDA-Public Use
  Company Number: US-CELGENEUS-163-20785-09040234

PATIENT
  Sex: Male

DRUGS (2)
  1. THALOMID [Suspect]
     Indication: MYELODYSPLASTIC SYNDROME
     Route: 048
     Dates: start: 20080520, end: 20090303
  2. THALOMID [Suspect]
     Route: 048
     Dates: start: 20090311

REACTIONS (3)
  - CARDIAC OPERATION [None]
  - DRUG INTOLERANCE [None]
  - NEUROPATHY PERIPHERAL [None]
